FAERS Safety Report 5537381-1 (Version None)
Quarter: 2007Q4

REPORT INFORMATION
  Report Type: 
  Country: None (occurrence: None)
  Receive Date: 20071207
  Receipt Date: 20071204
  Transmission Date: 20080405
  Serious: Yes (Hospitalization)
  Sender: FDA-Public Use
  Company Number: A0697097A

PATIENT
  Age: 55 Year
  Sex: Female

DRUGS (1)
  1. LAPATINIB [Suspect]
     Indication: BREAST CANCER
     Dosage: 1500MG PER DAY
     Route: 048
     Dates: start: 20071127

REACTIONS (4)
  - ACCIDENTAL OVERDOSE [None]
  - DIARRHOEA [None]
  - HEPATIC ENZYME INCREASED [None]
  - SINUS TACHYCARDIA [None]
